FAERS Safety Report 10061724 (Version 1)
Quarter: 2014Q2

REPORT INFORMATION
  Report Type: Spontaneous
  Country: US (occurrence: None)
  Receive Date: 20140403
  Receipt Date: 20140403
  Transmission Date: 20141212
  Serious: Yes (Other)
  Sender: FDA-Public Use
  Company Number: US-TORRENT-00000739

PATIENT
  Sex: Female

DRUGS (1)
  1. DULOXETINE HYDROCHLORIDE [Suspect]
     Indication: PRODUCT USED FOR UNKNOWN INDICATION
     Dates: start: 201403

REACTIONS (8)
  - Hypertensive crisis [None]
  - Palpitations [None]
  - Hyperhidrosis [None]
  - Chills [None]
  - Headache [None]
  - Nausea [None]
  - Electrocardiogram change [None]
  - Refusal of treatment by patient [None]
